FAERS Safety Report 5473997-9 (Version None)
Quarter: 2007Q3

REPORT INFORMATION
  Report Type: 
  Country: None (occurrence: None)
  Receive Date: 20070830
  Receipt Date: 20070614
  Transmission Date: 20080115
  Serious: Yes (Hospitalization)
  Sender: FDA-Public Use
  Company Number: 241744

PATIENT
  Age: 35 Year
  Sex: Female

DRUGS (18)
  1. XOLAIR [Suspect]
     Indication: ASTHMA
     Dosage: 375 MG, Q3W, SUBCUTANEOUS
     Route: 058
     Dates: start: 20070207, end: 20070418
  2. ZYFLO [Concomitant]
  3. ADVAIR DISKUS 100/50 [Concomitant]
  4. FLOVENT [Concomitant]
  5. XOPENEX [Concomitant]
  6. ALBUTEROL (ALBUTEROL/ALBUTEROL SULFATE) [Concomitant]
  7. FLONASE [Concomitant]
  8. ATROVENT [Concomitant]
  9. ALLEGRA (FEXOFENADINE HYDROCHLORIDE) [Concomitant]
  10. MEDICATION (UNK INGREDIENT) (GENERIC COMPONENT(S) NOT KNOWN) [Concomitant]
  11. PREDNISONE TAB [Concomitant]
  12. HYDROCHLOROTHIAZIDE [Concomitant]
  13. ASTELIN [Concomitant]
  14. PERCOCET [Concomitant]
  15. ASCORBIC ACID [Concomitant]
  16. EFFEXOR [Concomitant]
  17. COLACE (DOCUSATE SODIUM) [Concomitant]
  18. VITAMINS (VITAMINS NOS) [Concomitant]

REACTIONS (1)
  - TONGUE OEDEMA [None]
